FAERS Safety Report 9383811 (Version 2)
Quarter: 2014Q4

REPORT INFORMATION
  Report Type: Spontaneous
  Country: FR (occurrence: FR)
  Receive Date: 20130704
  Receipt Date: 20141130
  Transmission Date: 20150529
  Serious: Yes (Death, Life-Threatening, Hospitalization, Other)
  Sender: FDA-Public Use
  Company Number: FR-BRISTOL-MYERS SQUIBB COMPANY-18904052

PATIENT
  Age: 87 Year
  Sex: Female

DRUGS (6)
  1. COUMADINE [Suspect]
     Active Substance: WARFARIN SODIUM
     Indication: ATRIAL FIBRILLATION
     Dosage: 1.5X2 MGFROM 11MAR13 TO 13MAR13 AND 2X2 MG DAILY FROM 13MAR13 TO 14MAR13
     Route: 048
     Dates: start: 20130306
  2. ARIXTRA [Suspect]
     Active Substance: FONDAPARINUX SODIUM
     Indication: ARRHYTHMIA
     Dosage: 1DF: 7.5 MG/ 0.6 ML
     Route: 058
     Dates: start: 20130306, end: 20130314
  3. ARIXTRA [Suspect]
     Active Substance: FONDAPARINUX SODIUM
     Indication: ATRIAL FIBRILLATION
     Dosage: 1DF: 7.5 MG/ 0.6 ML
     Route: 058
     Dates: start: 20130306, end: 20130314
  4. COUMADINE [Suspect]
     Active Substance: WARFARIN SODIUM
     Indication: ARRHYTHMIA
     Dosage: 1.5X2 MGFROM 11MAR13 TO 13MAR13 AND 2X2 MG DAILY FROM 13MAR13 TO 14MAR13
     Route: 048
     Dates: start: 20130306
  5. AMLOR [Concomitant]
     Active Substance: AMLODIPINE BESYLATE
  6. KARDEGIC [Suspect]
     Active Substance: ASPIRIN LYSINE
     Indication: ARRHYTHMIA
     Route: 048
     Dates: start: 20130306, end: 20130313

REACTIONS (8)
  - Anaemia [Recovering/Resolving]
  - Renal impairment [Unknown]
  - Intestinal obstruction [Recovering/Resolving]
  - General physical health deterioration [Unknown]
  - Death [Fatal]
  - Muscle haemorrhage [Recovering/Resolving]
  - Hypovolaemic shock [Recovering/Resolving]
  - Haemorrhage [Recovering/Resolving]

NARRATIVE: CASE EVENT DATE: 20130314
